FAERS Safety Report 7280913-6 (Version None)
Quarter: 2011Q1

REPORT INFORMATION
  Report Type: 
  Country: None (occurrence: None)
  Receive Date: 20110208
  Receipt Date: 20110125
  Transmission Date: 20110831
  Serious: Yes (Death)
  Sender: FDA-Public Use
  Company Number: KR-ALEXION-A201100108

PATIENT
  Sex: Female

DRUGS (7)
  1. CALCORT [Concomitant]
     Indication: PAROXYSMAL NOCTURNAL HAEMOGLOBINURIA
     Dosage: 12 MG, QOD
     Route: 048
     Dates: start: 20101201, end: 20110121
  2. SOLIRIS [Suspect]
     Dosage: 900 MG, Q2W
     Route: 042
     Dates: start: 20100728, end: 20110112
  3. SOLIRIS [Suspect]
     Indication: PAROXYSMAL NOCTURNAL HAEMOGLOBINURIA
     Dosage: 600 MG, QW
     Route: 042
     Dates: start: 20100630
  4. CALCORT [Concomitant]
     Dosage: 3 MG, QOD
     Route: 048
     Dates: start: 20101201, end: 20110121
  5. WARFARIN SODIUM [Concomitant]
     Dosage: UNK
     Dates: end: 20100728
  6. CAL-D-VITA                         /00944201/ [Concomitant]
     Indication: MINERAL SUPPLEMENTATION
     Dosage: 2 TAB
     Route: 048
     Dates: start: 20100120, end: 20110121
  7. FEROBA [Concomitant]
     Indication: ANAEMIA
     Dosage: 1 TAB
     Route: 048
     Dates: start: 20100728, end: 20110121

REACTIONS (2)
  - DEATH [None]
  - HEADACHE [None]
